FAERS Safety Report 4505482-2 (Version None)
Quarter: 2004Q4

REPORT INFORMATION
  Report Type: 
  Country: None (occurrence: None)
  Receive Date: 20041118
  Receipt Date: 20041118
  Transmission Date: 20050328
  Serious: Yes (Hospitalization)
  Sender: FDA-Public Use
  Company Number: None

PATIENT
  Age: 50 Year
  Sex: Female
  Weight: 83 kg

DRUGS (7)
  1. LIPITOR [Suspect]
     Indication: HYPERCHOLESTEROLAEMIA
  2. AVANDIA [Concomitant]
  3. PAXIL [Concomitant]
  4. GLUCOPHAGE [Concomitant]
  5. CLUCOTROL [Concomitant]
  6. ANTI-INFLAMMATORY [Concomitant]
  7. IMODIUM [Concomitant]

REACTIONS (2)
  - DERMATOMYOSITIS [None]
  - RHABDOMYOLYSIS [None]
